FAERS Safety Report 6679434-0 (Version None)
Quarter: 2010Q2

REPORT INFORMATION
  Report Type: 
  Country: None (occurrence: None)
  Receive Date: 20100413
  Receipt Date: 20100405
  Transmission Date: 20101027
  Serious: Yes (Death, Other)
  Sender: FDA-Public Use
  Company Number: IT-ROCHE-695623

PATIENT
  Sex: Female

DRUGS (2)
  1. HERCEPTIN [Suspect]
     Indication: BREAST CANCER
     Route: 065
  2. DOCETAXEL [Concomitant]
     Indication: BREAST CANCER

REACTIONS (4)
  - BONE MARROW TOXICITY [None]
  - MALIGNANT NEOPLASM PROGRESSION [None]
  - SKIN HAEMORRHAGE [None]
  - THROMBOCYTOPENIA [None]
